FAERS Safety Report 10736876 (Version 1)
Quarter: 2015Q1

REPORT INFORMATION
  Report Type: Report from Study
  Country: US (occurrence: None)
  Receive Date: 20150122
  Receipt Date: 20150122
  Transmission Date: 20150721
  Serious: Yes (Death)
  Sender: FDA-Public Use
  Company Number: 201501IM008710

PATIENT
  Age: 71 Year
  Sex: Male

DRUGS (6)
  1. LEVOTHYROXINE [Concomitant]
     Active Substance: LEVOTHYROXINE
  2. ESBRIET [Suspect]
     Active Substance: PIRFENIDONE
     Indication: IDIOPATHIC PULMONARY FIBROSIS
     Route: 048
     Dates: start: 20141225, end: 20141226
  3. IPRATROPIUM [Concomitant]
     Active Substance: IPRATROPIUM
  4. CRESTOR [Concomitant]
     Active Substance: ROSUVASTATIN CALCIUM
  5. DILTIAZEM [Concomitant]
     Active Substance: DILTIAZEM
  6. ASPIRIN. [Concomitant]
     Active Substance: ASPIRIN

REACTIONS (3)
  - Decreased appetite [None]
  - Mood altered [None]
  - Malaise [None]

NARRATIVE: CASE EVENT DATE: 20150103
